FAERS Safety Report 8702424 (Version 2)
Quarter: 2012Q4

REPORT INFORMATION
  Report Type: Report from Study
  Country: IL (occurrence: IL)
  Receive Date: 20120803
  Receipt Date: 20120906
  Transmission Date: 20130627
  Serious: No
  Sender: FDA-Public Use
  Company Number: IL-INCYTE CORPORATION-2012IN001390

PATIENT
  Age: 63 Year
  Sex: Male

DRUGS (1)
  1. INC424 [Suspect]
     Indication: MYELOFIBROSIS
     Dosage: UNK
     Route: 048
     Dates: start: 20110906

REACTIONS (1)
  - Thrombocytosis [Not Recovered/Not Resolved]
